FAERS Safety Report 5736922-9 (Version None)
Quarter: 2008Q2

REPORT INFORMATION
  Report Type: 
  Country: None (occurrence: None)
  Receive Date: 20080509
  Receipt Date: 20080501
  Transmission Date: 20081010
  Serious: Yes (Hospitalization, Other)
  Sender: FDA-Public Use
  Company Number: TAP2007Q0464

PATIENT
  Age: 76 Year
  Sex: Male
  Weight: 70.3075 kg

DRUGS (7)
  1. LUPRON DEPOT-4 [Suspect]
     Indication: PROSTATE CANCER
     Dosage: 30 MG (30 MG, 1 IN 4 M), INTRAMUSCULAR
     Route: 030
     Dates: start: 20051208
  2. IMDUR [Concomitant]
  3. ALTACE [Concomitant]
  4. DILTIAZEM [Concomitant]
  5. SIMVASTATIN [Concomitant]
  6. NOVASEN (ACETYLSALICYLIC ACID) [Concomitant]
  7. FLOMAX (MORNIFLUMATE) [Concomitant]

REACTIONS (2)
  - COLON CANCER RECURRENT [None]
  - GASTROENTERITIS [None]
